FAERS Safety Report 6098878-1 (Version None)
Quarter: 2009Q1

REPORT INFORMATION
  Report Type: 
  Country: None (occurrence: None)
  Receive Date: 20090302
  Receipt Date: 20090227
  Transmission Date: 20090719
  Serious: Yes (Other)
  Sender: FDA-Public Use
  Company Number: B0562015A

PATIENT
  Age: 12 Year
  Sex: Male

DRUGS (2)
  1. FLUNASE (JAPAN) [Suspect]
     Dosage: 50MCG TWICE PER DAY
     Route: 045
     Dates: start: 20090123
  2. TALION [Concomitant]
     Dosage: 10MG TWICE PER DAY
     Route: 048
     Dates: start: 20090123

REACTIONS (1)
  - DELIRIUM [None]
